FAERS Safety Report 4796602-3 (Version None)
Quarter: 2005Q4

REPORT INFORMATION
  Report Type: 
  Country: None (occurrence: None)
  Receive Date: 20051013
  Receipt Date: 20050729
  Transmission Date: 20060501
  Serious: Yes (Disabling)
  Sender: FDA-Public Use
  Company Number: 200517056GDDC

PATIENT
  Age: 65 Year
  Sex: Female

DRUGS (3)
  1. AMARYL [Suspect]
     Route: 048
     Dates: start: 20050201, end: 20050601
  2. MELOXICAM [Suspect]
  3. APROVEL [Concomitant]
     Route: 048
     Dates: start: 20050201, end: 20050601

REACTIONS (3)
  - HEADACHE [None]
  - MALAISE [None]
  - NAUSEA [None]
